FAERS Safety Report 24330129 (Version 1)
Quarter: 2024Q3

REPORT INFORMATION
  Report Type: Spontaneous
  Country: TR (occurrence: TR)
  Receive Date: 20240917
  Receipt Date: 20240917
  Transmission Date: 20241016
  Serious: Yes (Death)
  Sender: BIOGEN
  Company Number: TR-BIOGEN-2024BI01282318

PATIENT
  Age: 3 Year
  Sex: Female

DRUGS (1)
  1. SPINRAZA [Suspect]
     Active Substance: NUSINERSEN
     Indication: Product used for unknown indication
     Dosage: 12 DOSES; 2,4 MG/ML
     Route: 050
     Dates: end: 20230620

REACTIONS (1)
  - Death [Fatal]

NARRATIVE: CASE EVENT DATE: 20231020
